FAERS Safety Report 15792726 (Version 1)
Quarter: 2019Q1

REPORT INFORMATION
  Report Type: Spontaneous
  Country: US (occurrence: US)
  Receive Date: 20190107
  Receipt Date: 20190107
  Transmission Date: 20190417
  Serious: No
  Sender: FDA-Public Use
  Company Number: US-009507513-1812USA011264

PATIENT
  Sex: Female

DRUGS (1)
  1. ASMANEX [Suspect]
     Active Substance: MOMETASONE FUROATE
     Indication: ASTHMA
     Dosage: 30 DOSAGE FORM
     Route: 048
     Dates: start: 2017

REACTIONS (3)
  - Dyspnoea [Recovered/Resolved]
  - Product quality issue [Unknown]
  - Circumstance or information capable of leading to medication error [Unknown]
